FAERS Safety Report 5646804-9 (Version None)
Quarter: 2008Q1

REPORT INFORMATION
  Report Type: 
  Country: None (occurrence: None)
  Receive Date: 20080303
  Receipt Date: 20080225
  Transmission Date: 20080703
  Serious: Yes (Death)
  Sender: FDA-Public Use
  Company Number: DE-BRISTOL-MYERS SQUIBB COMPANY-14089270

PATIENT
  Age: 78 Year
  Sex: Female

DRUGS (2)
  1. PACLITAXEL [Suspect]
     Indication: BREAST CANCER METASTATIC
     Route: 042
     Dates: start: 20080109, end: 20080109
  2. GEMZAR [Suspect]
     Indication: BREAST CANCER METASTATIC
     Route: 042
     Dates: start: 20080121, end: 20080121

REACTIONS (1)
  - CONDITION AGGRAVATED [None]
